FAERS Safety Report 18646599 (Version 1)
Quarter: 2020Q4

REPORT INFORMATION
  Report Type: Other
  Country: US (occurrence: US)
  Receive Date: 20201221
  Receipt Date: 20201221
  Transmission Date: 20210114
  Serious: No
  Sender: FDA-Public Use
  Company Number: US-ACORDA-ACO_166881_2020

PATIENT
  Sex: Male

DRUGS (1)
  1. INBRIJA [Suspect]
     Active Substance: LEVODOPA
     Indication: PARKINSON^S DISEASE
     Dosage: 84 MILLIGRAM, AS NEEDED
     Dates: start: 20201105

REACTIONS (8)
  - Cognitive disorder [Unknown]
  - Adverse event [Unknown]
  - Tremor [Unknown]
  - General physical health deterioration [Unknown]
  - Muscle spasms [Unknown]
  - Condition aggravated [Unknown]
  - Slow speech [Unknown]
  - Aphasia [Unknown]
